FAERS Safety Report 14514655 (Version 1)
Quarter: 2018Q1

REPORT INFORMATION
  Report Type: Spontaneous
  Country: US (occurrence: US)
  Receive Date: 20180209
  Receipt Date: 20180209
  Transmission Date: 20180509
  Serious: Yes (Disabling, Other)
  Sender: FDA-Public Use
  Company Number: US-REGENERON PHARMACEUTICALS, INC.-2018-12981

PATIENT

DRUGS (2)
  1. EYLEA [Suspect]
     Active Substance: AFLIBERCEPT
     Dosage: RIGHT EYE (OD), EVERY 4 WEEKS
     Dates: start: 20180102, end: 20180102
  2. EYLEA [Suspect]
     Active Substance: AFLIBERCEPT
     Indication: RETINAL VEIN OCCLUSION
     Dosage: RIGHT EYE (OD), EVERY 4 WEEKS
     Dates: start: 20170823

REACTIONS (5)
  - Blindness unilateral [Unknown]
  - Endophthalmitis [Unknown]
  - Vitrectomy [Recovered/Resolved]
  - Intraocular pressure increased [Unknown]
  - Eye infection bacterial [Unknown]

NARRATIVE: CASE EVENT DATE: 201801
